FAERS Safety Report 20544848 (Version 1)
Quarter: 2022Q1

REPORT INFORMATION
  Report Type: Spontaneous
  Country: US (occurrence: US)
  Receive Date: 20220303
  Receipt Date: 20220303
  Transmission Date: 20220423
  Serious: No
  Sender: FDA-Public Use
  Company Number: US-SA-SAC20220228001241

PATIENT
  Age: 59 Year
  Sex: Female

DRUGS (1)
  1. LUMIZYME [Suspect]
     Active Substance: ALGLUCOSIDASE ALFA
     Indication: Glycogen storage disease type II
     Dosage: 2300 MG, QOW
     Route: 042
     Dates: start: 20110206

REACTIONS (2)
  - Fall [Unknown]
  - Tenderness [Unknown]

NARRATIVE: CASE EVENT DATE: 20220222
